FAERS Safety Report 6088022-9 (Version None)
Quarter: 2009Q1

REPORT INFORMATION
  Report Type: 
  Country: None (occurrence: None)
  Receive Date: 20090223
  Receipt Date: 20090212
  Transmission Date: 20090719
  Serious: Yes (Hospitalization)
  Sender: FDA-Public Use
  Company Number: JP-ABBOTT-08P-087-0464034-00

PATIENT
  Age: 87 Year
  Sex: Male

DRUGS (7)
  1. LEUPROLIDE ACETATE [Suspect]
     Indication: PROSTATE CANCER STAGE IV
     Route: 058
     Dates: start: 20071219
  2. LEUPROLIDE ACETATE [Suspect]
     Dates: start: 20071123, end: 20071123
  3. CASODEX [Concomitant]
     Indication: PROSTATE CANCER STAGE IV
     Route: 048
  4. PERDIPINE [Concomitant]
     Indication: HYPERTENSION
     Route: 048
     Dates: end: 20080302
  5. ADALAT CC [Concomitant]
     Indication: HYPERTENSION
     Route: 048
  6. MICARDIS [Concomitant]
     Indication: HYPERTENSION
     Route: 048
  7. INDERAL [Concomitant]
     Indication: HYPERTENSION
     Route: 048

REACTIONS (1)
  - CARDIAC FAILURE [None]
